FAERS Safety Report 7480654-6 (Version None)
Quarter: 2011Q2

REPORT INFORMATION
  Report Type: 
  Country: None (occurrence: None)
  Receive Date: 20110512
  Receipt Date: 20110512
  Transmission Date: 20111010
  Serious: No
  Sender: FDA-Public Use
  Company Number: None

PATIENT
  Age: 40 Year
  Sex: Female
  Weight: 68.0396 kg

DRUGS (4)
  1. SINGULAIR [Suspect]
     Indication: ASTHMA
     Dosage: 10MG PILL ONCE A DAY PO
     Route: 048
     Dates: start: 20100401, end: 20100511
  2. SINGULAIR [Suspect]
     Indication: HYPERSENSITIVITY
     Dosage: 10MG PILL ONCE A DAY PO
     Route: 048
     Dates: start: 20100401, end: 20100511
  3. SYMBICORT [Suspect]
     Indication: ASTHMA
     Dosage: 2 PUFFS TWICE A DAY PO
     Route: 048
     Dates: start: 20100401, end: 20110511
  4. SYMBICORT [Suspect]
     Indication: HYPERSENSITIVITY
     Dosage: 2 PUFFS TWICE A DAY PO
     Route: 048
     Dates: start: 20100401, end: 20110511

REACTIONS (1)
  - TREMOR [None]
